FAERS Safety Report 8512723-3 (Version None)
Quarter: 2012Q3

REPORT INFORMATION
  Report Type: 
  Country: None (occurrence: None)
  Receive Date: 20120716
  Receipt Date: 20120709
  Transmission Date: 20120928
  Serious: Yes (Other)
  Sender: FDA-Public Use
  Company Number: CA-JNJFOC-20120704344

PATIENT
  Sex: Female

DRUGS (4)
  1. HYDROMORPHONE HCL [Concomitant]
     Route: 065
  2. REMICADE [Suspect]
     Indication: CROHN'S DISEASE
     Route: 042
     Dates: start: 20050101
  3. REMICADE [Suspect]
     Indication: RHEUMATOID ARTHRITIS
     Route: 042
     Dates: start: 20050101
  4. MARIJUANA [Concomitant]
     Route: 065

REACTIONS (1)
  - TYPE 2 DIABETES MELLITUS [None]
